FAERS Safety Report 9386795 (Version 2)
Quarter: 2013Q3

REPORT INFORMATION
  Report Type: Spontaneous
  Country: US (occurrence: US)
  Receive Date: 20130708
  Receipt Date: 20130809
  Transmission Date: 20140515
  Serious: Yes (Disabling, Other)
  Sender: FDA-Public Use
  Company Number: US-CELGENEUS-163-POMAL-13052347

PATIENT
  Age: 73 Year
  Sex: Female

DRUGS (8)
  1. POMALYST [Suspect]
     Indication: PLASMA CELL MYELOMA
     Dosage: 4 MILLIGRAM
     Route: 048
     Dates: start: 20130220
  2. POMALYST [Suspect]
     Indication: NEUTROPHIL COUNT DECREASED
     Dosage: 3 MILLIGRAM
     Route: 048
     Dates: start: 201304, end: 20130515
  3. POMALYST [Suspect]
     Indication: WHITE BLOOD CELL COUNT DECREASED
  4. POMALYST [Suspect]
     Indication: HAEMOGLOBIN DECREASED
  5. POMALYST [Suspect]
     Indication: HAEMATOCRIT DECREASED
  6. POMALYST [Suspect]
     Indication: PLATELET COUNT DECREASED
  7. ASPIRIN [Concomitant]
     Indication: PLASMA CELL MYELOMA
     Dosage: 81 MILLIGRAM
     Route: 048
  8. DEXAMETHASONE [Concomitant]
     Indication: PLASMA CELL MYELOMA
     Route: 048
     Dates: start: 201302, end: 20130515

REACTIONS (4)
  - Pancytopenia [Recovered/Resolved]
  - Dyspnoea [Recovered/Resolved]
  - Fatigue [Recovered/Resolved]
  - Dizziness [Unknown]
